FAERS Safety Report 12634743 (Version 1)
Quarter: 2016Q3

REPORT INFORMATION
  Report Type: Spontaneous
  Country: US (occurrence: None)
  Receive Date: 20160808
  Receipt Date: 20160808
  Transmission Date: 20161109
  Serious: Yes (Disabling, Other)
  Sender: FDA-Public Use
  Company Number: None

PATIENT
  Age: 57 Year
  Weight: 167.83 kg

DRUGS (2)
  1. LEVOFLOXACIN. [Suspect]
     Active Substance: LEVOFLOXACIN
     Indication: SINUSITIS
  2. MELATONIN [Concomitant]
     Active Substance: MELATONIN

REACTIONS (6)
  - Paraesthesia [None]
  - Hypoaesthesia [None]
  - Tendon pain [None]
  - Arthralgia [None]
  - Insomnia [None]
  - Musculoskeletal pain [None]

NARRATIVE: CASE EVENT DATE: 20150921
